FAERS Safety Report 8262306-8 (Version None)
Quarter: 2012Q2

REPORT INFORMATION
  Report Type: 
  Country: None (occurrence: None)
  Receive Date: 20120405
  Receipt Date: 20120323
  Transmission Date: 20120825
  Serious: Yes (Hospitalization)
  Sender: FDA-Public Use
  Company Number: GB-MYLANLABS-2012S1006598

PATIENT
  Age: 71 Year
  Sex: Male

DRUGS (3)
  1. CYPROTERONE [Interacting]
     Indication: PROSTATE CANCER
     Dosage: 300MG
     Route: 065
     Dates: start: 20110601
  2. SIMVASTATIN [Suspect]
     Dosage: 40MG
     Route: 065
  3. ASPIRIN [Concomitant]
     Dosage: 75MG
     Route: 065

REACTIONS (3)
  - LIVER FUNCTION TEST ABNORMAL [None]
  - DRUG INTERACTION [None]
  - RHABDOMYOLYSIS [None]
